FAERS Safety Report 16411232 (Version 1)
Quarter: 2019Q2

REPORT INFORMATION
  Report Type: Spontaneous
  Country: US (occurrence: US)
  Receive Date: 20190610
  Receipt Date: 20190610
  Transmission Date: 20190711
  Serious: Yes (Hospitalization)
  Sender: FDA-Public Use
  Company Number: US-JNJFOC-20190608582

PATIENT
  Age: 60 Year
  Sex: Male

DRUGS (1)
  1. RISPERDAL [Suspect]
     Active Substance: RISPERIDONE
     Indication: PRODUCT USED FOR UNKNOWN INDICATION
     Route: 048
     Dates: start: 2009, end: 2014

REACTIONS (4)
  - Libido decreased [Unknown]
  - Breast enlargement [Unknown]
  - Suicide attempt [Unknown]
  - Weight increased [Unknown]

NARRATIVE: CASE EVENT DATE: 20100617
